FAERS Safety Report 7333675-8 (Version None)
Quarter: 2011Q1

REPORT INFORMATION
  Report Type: 
  Country: None (occurrence: None)
  Receive Date: 20110306
  Receipt Date: 20110223
  Transmission Date: 20110831
  Serious: Yes (Hospitalization, Other)
  Sender: FDA-Public Use
  Company Number: US-ELI_LILLY_AND_COMPANY-US201102006776

PATIENT
  Sex: Female

DRUGS (8)
  1. CALCIUM [Concomitant]
     Dosage: 300 UG, 2/D
  2. OMEGA 3-6-9 [Concomitant]
     Dosage: UNK, 2/D
  3. WELLBATRIN [Concomitant]
     Dosage: 150 MG, 2/D
  4. VITAMIN D [Concomitant]
     Dosage: UNK, 2/D
  5. FORTEO [Suspect]
     Dosage: 20 UG, DAILY (1/D)
     Route: 065
     Dates: start: 20110217
  6. PERCOCET [Concomitant]
     Indication: PAIN
     Dosage: UNK, AS NEEDED
  7. FORTEO [Suspect]
     Indication: OSTEOPOROSIS
     Dosage: 20 UG, DAILY (1/D)
     Route: 065
  8. FORTEO [Suspect]
     Dosage: 20 UG, DAILY (1/D)
     Route: 065
     Dates: end: 20110209

REACTIONS (5)
  - WRIST FRACTURE [None]
  - PAIN [None]
  - FALL [None]
  - NAUSEA [None]
  - MALAISE [None]
